FAERS Safety Report 23661556 (Version 1)
Quarter: 2024Q1

REPORT INFORMATION
  Report Type: Spontaneous
  Country: CA (occurrence: None)
  Receive Date: 20240322
  Receipt Date: 20240322
  Transmission Date: 20240410
  Serious: Yes (Other)
  Sender: FDA-Public Use
  Company Number: 2024A065006

PATIENT
  Age: 44 Year
  Sex: Female

DRUGS (5)
  1. FULVESTRANT [Suspect]
     Active Substance: FULVESTRANT
     Indication: Breast cancer stage II
  2. TAMOXIFEN [Suspect]
     Active Substance: TAMOXIFEN
     Indication: Breast cancer stage II
  3. PALBOCICLIB [Suspect]
     Active Substance: PALBOCICLIB
     Indication: Breast cancer stage II
  4. IPATASERTIB [Suspect]
     Active Substance: IPATASERTIB
     Indication: Breast cancer stage II
  5. LETROZOLE [Suspect]
     Active Substance: LETROZOLE
     Indication: Breast cancer stage II

REACTIONS (5)
  - Disease progression [Unknown]
  - Weight increased [Unknown]
  - Fatigue [Unknown]
  - Therapeutic product ineffective [Unknown]
  - Drug ineffective [Unknown]
